FAERS Safety Report 9941419 (Version 1)
Quarter: 2014Q1

REPORT INFORMATION
  Report Type: Report from Study
  Country: US (occurrence: US)
  Receive Date: 20140303
  Receipt Date: 20140303
  Transmission Date: 20141002
  Serious: No
  Sender: FDA-Public Use
  Company Number: US-ABBVIE-13P-163-1041772-00

PATIENT
  Sex: Female

DRUGS (3)
  1. HUMIRA [Suspect]
     Indication: CROHN^S DISEASE
     Route: 058
     Dates: start: 2005
  2. HUMIRA [Suspect]
     Indication: COLITIS ULCERATIVE
  3. NORTELOL [Concomitant]
     Indication: CONTRACEPTION

REACTIONS (4)
  - Frequent bowel movements [Unknown]
  - Drug ineffective [Unknown]
  - Diarrhoea [Unknown]
  - Flatulence [Unknown]
